FAERS Safety Report 4951716-X (Version None)
Quarter: 2006Q1

REPORT INFORMATION
  Report Type: 
  Country: None (occurrence: None)
  Receive Date: 20060323
  Receipt Date: 20060314
  Transmission Date: 20060701
  Serious: Yes (Hospitalization)
  Sender: FDA-Public Use
  Company Number: US-GLAXOSMITHKLINE-A0597543A

PATIENT
  Sex: Male

DRUGS (2)
  1. AUGMENTIN XR [Suspect]
     Indication: EAR INFECTION
     Dosage: 2TAB TWICE PER DAY
     Route: 048
     Dates: start: 20041026
  2. NO CONCURRENT MEDICATIONS [Concomitant]

REACTIONS (5)
  - ADVERSE EVENT [None]
  - GUILLAIN-BARRE SYNDROME [None]
  - PAIN [None]
  - PARALYSIS [None]
  - PHARMACEUTICAL PRODUCT COMPLAINT [None]
